FAERS Safety Report 5713327-8 (Version None)
Quarter: 2008Q2

REPORT INFORMATION
  Report Type: 
  Country: None (occurrence: None)
  Receive Date: 20080422
  Receipt Date: 20080411
  Transmission Date: 20081010
  Serious: Yes (Hospitalization)
  Sender: FDA-Public Use
  Company Number: TW-PFIZER INC-2008013605

PATIENT
  Sex: Male
  Weight: 72 kg

DRUGS (7)
  1. SU-011,248 [Suspect]
     Indication: GASTROINTESTINAL STROMAL TUMOUR
     Route: 048
     Dates: start: 20071215, end: 20080201
  2. DOXEPIN HCL [Concomitant]
     Route: 061
     Dates: start: 20080111, end: 20080205
  3. BISACODYL [Concomitant]
     Route: 048
     Dates: start: 20080111, end: 20080205
  4. MORPHINE [Concomitant]
     Route: 048
     Dates: start: 20080125, end: 20080205
  5. DEXAMETHASONE TAB [Concomitant]
     Route: 048
     Dates: start: 20080129, end: 20080205
  6. TRANEXAMIC ACID [Concomitant]
     Route: 048
     Dates: start: 20080129, end: 20080205
  7. ALUMINIUM + MAGNESIUM HYDROXIDE/DIMETICONE [Concomitant]
     Route: 048
     Dates: start: 20080129, end: 20080205

REACTIONS (1)
  - ANAL FISTULA [None]
